FAERS Safety Report 4851525-6 (Version None)
Quarter: 2005Q4

REPORT INFORMATION
  Report Type: 
  Country: None (occurrence: None)
  Receive Date: 20051212
  Receipt Date: 20051115
  Transmission Date: 20060501
  Serious: Yes (Life-Threatening)
  Sender: FDA-Public Use
  Company Number: DE-ROCHE-425036

PATIENT
  Sex: Male

DRUGS (2)
  1. PEG-INTERFERON A-2A (RO 25-8310) [Suspect]
     Route: 058
     Dates: start: 20050802, end: 20051107
  2. REBETOL [Suspect]
     Route: 048
     Dates: start: 20050802, end: 20051107

REACTIONS (2)
  - HEPATIC FAILURE [None]
  - HEPATITIS B [None]
